FAERS Safety Report 19197934 (Version 1)
Quarter: 2021Q2

REPORT INFORMATION
  Report Type: Report from Study
  Country: None (occurrence: US)
  Receive Date: 20210430
  Receipt Date: 20210430
  Transmission Date: 20210717
  Serious: Yes (Other)
  Sender: FDA-Public Use
  Company Number: US-ABBVIE-21K-163-3799997-00

PATIENT
  Sex: Male

DRUGS (1)
  1. HUMIRA [Suspect]
     Active Substance: ADALIMUMAB
     Indication: CROHN^S DISEASE
     Dosage: CITRATE FREE
     Route: 058
     Dates: start: 2016, end: 20210408

REACTIONS (11)
  - Peripheral swelling [Unknown]
  - Surgery [Unknown]
  - Anxiety [Unknown]
  - Pain [Unknown]
  - Systemic lupus erythematosus [Unknown]
  - Sleep disorder [Unknown]
  - Arthralgia [Not Recovered/Not Resolved]
  - Insomnia [Unknown]
  - Device breakage [Unknown]
  - Joint swelling [Unknown]
  - Musculoskeletal discomfort [Unknown]
